FAERS Safety Report 4746637-1 (Version None)
Quarter: 2005Q3

REPORT INFORMATION
  Report Type: 
  Country: None (occurrence: None)
  Receive Date: 20050815
  Receipt Date: 20050601
  Transmission Date: 20060218
  Serious: Yes (Other)
  Sender: FDA-Public Use
  Company Number: S05-CAN-02841-01

PATIENT
  Age: 37 Year
  Sex: Male

DRUGS (2)
  1. CELEXA [Suspect]
     Dosage: 10 MG QD
  2. RISPERIDONE [Suspect]
     Dosage: 10 MG QD

REACTIONS (8)
  - BRADYPHRENIA [None]
  - DISSOCIATION [None]
  - FATIGUE [None]
  - INSOMNIA [None]
  - REFLEXES ABNORMAL [None]
  - STUPOR [None]
  - TINNITUS [None]
  - VISUAL DISTURBANCE [None]
